FAERS Safety Report 8926381 (Version 2)
Quarter: 2012Q4

REPORT INFORMATION
  Report Type: 
  Country: JP (occurrence: JP)
  Receive Date: 20121127
  Receipt Date: 20121204
  Transmission Date: 20130627
  Serious: Yes (Hospitalization)
  Sender: FDA-Public Use
  Company Number: JP-GLAXOSMITHKLINE-B0845480A

PATIENT
  Age: 65 None
  Sex: Female

DRUGS (8)
  1. PAXIL [Suspect]
     Indication: DEPRESSION
     Route: 048
     Dates: end: 200903
  2. PAXIL [Suspect]
     Indication: DEPRESSION
     Route: 048
     Dates: start: 200903, end: 201103
  3. PAXIL [Suspect]
     Indication: DEPRESSION
     Route: 048
     Dates: start: 201103, end: 201208
  4. PAXIL [Suspect]
     Indication: DEPRESSION
     Route: 048
     Dates: start: 20120828, end: 20120920
  5. PAXIL [Suspect]
     Indication: DEPRESSION
     Dosage: 30MG Per day
     Route: 048
     Dates: start: 20120921, end: 20121008
  6. PAXIL [Suspect]
     Indication: DEPRESSION
     Dosage: 50MG Per day
     Route: 048
     Dates: start: 20121009, end: 20121023
  7. LIMAS [Concomitant]
     Indication: BIPOLAR DISORDER
     Route: 048
     Dates: start: 20120410
  8. SEROQUEL [Concomitant]
     Indication: BIPOLAR DISORDER
     Dosage: 100MG Per day
     Route: 048
     Dates: start: 20120925, end: 20121023

REACTIONS (6)
  - Serotonin syndrome [Recovered/Resolved]
  - Delirium [Unknown]
  - Altered state of consciousness [Unknown]
  - Depressive symptom [Unknown]
  - Face oedema [Unknown]
  - Dyskinesia [Unknown]
